FAERS Safety Report 7597765-7 (Version None)
Quarter: 2011Q3

REPORT INFORMATION
  Report Type: 
  Country: None (occurrence: None)
  Receive Date: 20110708
  Receipt Date: 20110629
  Transmission Date: 20111222
  Serious: Yes (Hospitalization)
  Sender: FDA-Public Use
  Company Number: GR-GLAXOSMITHKLINE-B0731696A

PATIENT
  Age: 60 Year
  Sex: Male

DRUGS (2)
  1. AMOXIL [Suspect]
     Indication: INFECTION
     Route: 065
  2. CLINDAMYCIN [Suspect]
     Indication: INFECTION

REACTIONS (5)
  - ASCITES [None]
  - DIARRHOEA [None]
  - ABDOMINAL PAIN [None]
  - VOMITING [None]
  - PYREXIA [None]
